FAERS Safety Report 10711444 (Version 11)
Quarter: 2015Q3

REPORT INFORMATION
  Report Type: Spontaneous
  Country: US (occurrence: US)
  Receive Date: 20150114
  Receipt Date: 20150925
  Transmission Date: 20151125
  Serious: Yes (Hospitalization, Other)
  Sender: FDA-Public Use
  Company Number: US-PFIZER INC-2015011200

PATIENT
  Age: 79 Year
  Sex: Female
  Weight: 58 kg

DRUGS (6)
  1. METOPROLOL [Concomitant]
     Active Substance: METOPROLOL
     Dosage: 25 MG, 2X/DAY
  2. LISINOPRIL. [Concomitant]
     Active Substance: LISINOPRIL
     Dosage: 25 MG, 1X/DAY
  3. ASPIRIN /00002701/ [Concomitant]
     Active Substance: ASPIRIN
     Dosage: 81 MG, DAILY
  4. AROMASIN [Suspect]
     Active Substance: EXEMESTANE
     Indication: BREAST CANCER
     Dosage: 1 DF, DAILY
     Dates: start: 201212
  5. LOVASTATIN. [Concomitant]
     Active Substance: LOVASTATIN
     Dosage: 25 MG, 1X/DAY
  6. PLAVIX [Concomitant]
     Active Substance: CLOPIDOGREL BISULFATE
     Dosage: 75 MG, DAILY

REACTIONS (11)
  - Visual acuity reduced [Not Recovered/Not Resolved]
  - Speech disorder [Unknown]
  - Cerebrovascular accident [Unknown]
  - Neoplasm malignant [Unknown]
  - Condition aggravated [Unknown]
  - Blindness [Not Recovered/Not Resolved]
  - Drug dose omission [Not Recovered/Not Resolved]
  - Thrombosis [Unknown]
  - Cerebral haemorrhage [Unknown]
  - Intracranial aneurysm [Unknown]
  - Macular degeneration [Unknown]

NARRATIVE: CASE EVENT DATE: 2014
